FAERS Safety Report 5648103-8 (Version None)
Quarter: 2008Q1

REPORT INFORMATION
  Report Type: 
  Country: None (occurrence: None)
  Receive Date: 20080304
  Receipt Date: 20080227
  Transmission Date: 20080703
  Serious: Yes (Other)
  Sender: FDA-Public Use
  Company Number: IE-WYE-G01159008

PATIENT
  Sex: Female

DRUGS (3)
  1. EFFEXOR XR [Suspect]
     Indication: ANXIETY
     Dosage: UNKNOWN
     Route: 048
  2. EFFEXOR XR [Suspect]
     Indication: DEPRESSION
  3. LEXOTAN [Concomitant]
     Indication: ANXIETY
     Dosage: UNKNOWN

REACTIONS (2)
  - BODY TEMPERATURE INCREASED [None]
  - SUICIDAL IDEATION [None]
